FAERS Safety Report 5894318-3 (Version None)
Quarter: 2008Q3

REPORT INFORMATION
  Report Type: 
  Country: None (occurrence: None)
  Receive Date: 20080922
  Receipt Date: 20080829
  Transmission Date: 20090109
  Serious: Yes (Other)
  Sender: FDA-Public Use
  Company Number: US024523

PATIENT
  Age: 41 Year
  Sex: Female
  Weight: 98.8842 kg

DRUGS (14)
  1. ARMODAFINIL [Suspect]
     Indication: SCHIZOAFFECTIVE DISORDER
     Dosage: 150 MG QAM ORAL
     Route: 048
     Dates: start: 20080105, end: 20080125
  2. ARMODAFINIL [Suspect]
     Indication: SCHIZOPHRENIA
     Dosage: 150 MG QAM ORAL
     Route: 048
     Dates: start: 20080105, end: 20080125
  3. SEROQUEL [Concomitant]
  4. ZOLOFT [Concomitant]
  5. COMBIVENT [Concomitant]
  6. FLUTICASONE PROPIONATE [Concomitant]
  7. ESTRADIOL [Concomitant]
  8. HYDROCHLOROTHIAZIDE [Concomitant]
  9. LISINOPRIL [Concomitant]
  10. GLYBURIDE [Concomitant]
  11. SPIRONOLACTONE [Concomitant]
  12. COLACE [Concomitant]
  13. SIMVASTATIN [Concomitant]
  14. ZYRTEC [Concomitant]

REACTIONS (6)
  - PRURITUS [None]
  - RASH [None]
  - RASH PAPULAR [None]
  - SKIN EXFOLIATION [None]
  - SKIN LESION [None]
  - URTICARIA [None]
